FAERS Safety Report 9070181 (Version 1)
Quarter: 2013Q1

REPORT INFORMATION
  Report Type: Spontaneous
  Country: US (occurrence: US)
  Receive Date: 20130129
  Receipt Date: 20130129
  Transmission Date: 20140127
  Serious: No
  Sender: FDA-Public Use
  Company Number: US-ABBOTT-12P-163-0926989-00

PATIENT
  Age: 75 Year
  Sex: Female

DRUGS (3)
  1. HUMIRA 40 MG/0.8 ML PEN [Suspect]
     Indication: COLITIS
     Dates: start: 2010
  2. METHOTREXATE [Concomitant]
     Indication: COLITIS
  3. PREDNISONE [Concomitant]
     Indication: COLITIS

REACTIONS (3)
  - Swelling face [Unknown]
  - Urticaria [Unknown]
  - Dyspnoea [Unknown]
